FAERS Safety Report 7672071-0 (Version None)
Quarter: 2011Q3

REPORT INFORMATION
  Report Type: 
  Country: None (occurrence: None)
  Receive Date: 20110809
  Receipt Date: 20110726
  Transmission Date: 20111222
  Serious: Yes (Hospitalization)
  Sender: FDA-Public Use
  Company Number: PHHO2011JP13264

PATIENT
  Age: 70 Year
  Sex: Male
  Weight: 65.5 kg

DRUGS (7)
  1. VOLTAREN [Concomitant]
     Indication: RHEUMATOID ARTHRITIS
     Dosage: 37.5 MG, BID
     Dates: start: 20091224, end: 20101101
  2. DIOVAN [Suspect]
     Indication: HYPERTENSION
  3. TRICHLORMETHIAZIDE [Suspect]
     Indication: HYPERTENSION
     Dosage: 1 MG, QD
     Route: 048
     Dates: start: 20050101
  4. MOBIC [Concomitant]
     Indication: RHEUMATOID ARTHRITIS
     Dosage: 10 MG, QD
     Dates: start: 20050101, end: 20101101
  5. PREDNISOLONE [Suspect]
     Indication: RHEUMATOID ARTHRITIS
     Dosage: 2.5 MG, QD
     Route: 048
     Dates: start: 20091215
  6. CALBLOCK [Suspect]
     Indication: HYPERTENSION
     Dosage: 16 MG, QD
     Route: 048
     Dates: start: 20050101
  7. KETOPROFEN [Concomitant]
     Indication: RHEUMATOID ARTHRITIS
     Dosage: UNK
     Dates: start: 20091215

REACTIONS (1)
  - CHOLECYSTITIS CHRONIC [None]
